FAERS Safety Report 6289643-0 (Version None)
Quarter: 2009Q3

REPORT INFORMATION
  Report Type: 
  Country: None (occurrence: None)
  Receive Date: 20090730
  Receipt Date: 20010412
  Transmission Date: 20100115
  Serious: Yes (Death)
  Sender: FDA-Public Use
  Company Number: 2001COU0647

PATIENT
  Sex: Female

DRUGS (1)
  1. COUMADIN [Suspect]
     Indication: ADVERSE EVENT
     Dosage: UNK UNK
     Route: 048
     Dates: end: 20010409

REACTIONS (2)
  - INTRA-UTERINE DEATH [None]
  - PREGNANCY [None]
